FAERS Safety Report 9465098 (Version 1)
Quarter: 2013Q3

REPORT INFORMATION
  Report Type: Spontaneous
  Country: US (occurrence: US)
  Receive Date: 20130819
  Receipt Date: 20130819
  Transmission Date: 20140515
  Serious: Yes (Other)
  Sender: FDA-Public Use
  Company Number: CHPA2013US012998

PATIENT
  Age: 71 Year
  Sex: Male

DRUGS (3)
  1. GAS-X EXTSTR CHEW TABS PEPPERMINT CREME [Suspect]
     Indication: ABDOMINAL DISTENSION
     Dosage: 1 DF, ONCE/SINGLE
     Route: 048
     Dates: start: 20130815, end: 20130815
  2. GAS-X EXTSTR CHEW TABS PEPPERMINT CREME [Suspect]
     Indication: FLATULENCE
  3. COUMADIN//WARFARIN SODIUM [Suspect]
     Dosage: UNK, UNK

REACTIONS (1)
  - International normalised ratio increased [Unknown]
